FAERS Safety Report 25041701 (Version 1)
Quarter: 2025Q1

REPORT INFORMATION
  Report Type: Spontaneous
  Country: US (occurrence: None)
  Receive Date: 20250305
  Receipt Date: 20250305
  Transmission Date: 20250409
  Serious: No
  Sender: FDA-CTU
  Company Number: None

PATIENT
  Age: 23 Year
  Sex: Male
  Weight: 78.75 kg

DRUGS (1)
  1. FINASTERIDE\MINOXIDIL [Suspect]
     Active Substance: FINASTERIDE\MINOXIDIL
     Indication: Androgenetic alopecia
     Dosage: 2 SPRAY(S) DAILY TOPICAL
     Route: 061

REACTIONS (3)
  - Breast tenderness [None]
  - Gynaecomastia [None]
  - Erectile dysfunction [None]

NARRATIVE: CASE EVENT DATE: 20250214
